FAERS Safety Report 26050987 (Version 5)
Quarter: 2025Q4

REPORT INFORMATION
  Report Type: Report from Study
  Country: EU (occurrence: EU)
  Receive Date: 20251117
  Receipt Date: 20251210
  Transmission Date: 20260117
  Serious: Yes (Death, Hospitalization)
  Sender: ABBVIE
  Company Number: EU-ABBVIE-6544693

PATIENT
  Age: 80 Year
  Sex: Male
  Weight: 80 kg

DRUGS (3)
  1. CARBIDOPA\LEVODOPA [Suspect]
     Active Substance: CARBIDOPA\LEVODOPA
     Indication: Parkinson^s disease
     Route: 050
     Dates: start: 20211125, end: 20251108
  2. CARBIDOPA\LEVODOPA [Suspect]
     Active Substance: CARBIDOPA\LEVODOPA
     Dosage: EXCESS DOSAGE
     Route: 050
  3. SINEMET [Concomitant]
     Active Substance: CARBIDOPA\LEVODOPA
     Indication: Parkinson^s disease
     Dosage: DOSE AND FREQUENCY: UNKNOWN
     Route: 048
     Dates: start: 20251011, end: 20251111

REACTIONS (11)
  - Condition aggravated [Fatal]
  - Dyskinesia [Unknown]
  - Device issue [Unknown]
  - Bedridden [Unknown]
  - Muscle spasms [Recovered/Resolved]
  - Tremor [Unknown]
  - On and off phenomenon [Unknown]
  - Incorrect dose administered [Unknown]
  - Parkinson^s disease [Fatal]
  - Muscle atrophy [Not Recovered/Not Resolved]
  - Condition aggravated [Unknown]

NARRATIVE: CASE EVENT DATE: 20250101
